FAERS Safety Report 6676426-2 (Version None)
Quarter: 2010Q2

REPORT INFORMATION
  Report Type: 
  Country: None (occurrence: None)
  Receive Date: 20100412
  Receipt Date: 20100331
  Transmission Date: 20101027
  Serious: Yes (Other)
  Sender: FDA-Public Use
  Company Number: PHHY2010US20550

PATIENT
  Sex: Male
  Weight: 19.501 kg

DRUGS (1)
  1. EXJADE [Suspect]
     Dosage: 375 MG, DAILY
     Route: 048
     Dates: start: 20090904, end: 20100309

REACTIONS (2)
  - CEREBROVASCULAR ACCIDENT [None]
  - TRANSFUSION [None]
